FAERS Safety Report 5124045-1 (Version None)
Quarter: 2006Q4

REPORT INFORMATION
  Report Type: 
  Country: None (occurrence: None)
  Receive Date: 20061010
  Receipt Date: 20050824
  Transmission Date: 20070319
  Serious: No
  Sender: FDA-Public Use
  Company Number: US-BRISTOL-MYERS SQUIBB COMPANY-13089800

PATIENT
  Sex: Female

DRUGS (5)
  1. AVAPRO [Suspect]
     Dates: start: 20050101
  2. DESIPRAMINE HCL [Suspect]
  3. METOPROLOL TARTRATE [Concomitant]
  4. LEVOXYL [Concomitant]
  5. TRIAMTERENE [Concomitant]

REACTIONS (2)
  - HALLUCINATION [None]
  - SLEEP DISORDER [None]
